FAERS Safety Report 23013116 (Version 2)
Quarter: 2024Q4

REPORT INFORMATION
  Report Type: Spontaneous
  Country: IT (occurrence: IT)
  Receive Date: 20230930
  Receipt Date: 20241129
  Transmission Date: 20250115
  Serious: Yes (Hospitalization)
  Sender: TEVA
  Company Number: None

PATIENT
  Age: 65 Year
  Sex: Male
  Weight: 75 kg

DRUGS (6)
  1. ETOPOSIDE [Suspect]
     Active Substance: ETOPOSIDE
     Indication: Lung neoplasm malignant
     Dosage: TIME INTERVAL: TOTAL: 150MG IN SLOW VENOUS INFUSION OVER 60, ETOPOSIDE TEVA
     Route: 042
     Dates: start: 20230816, end: 20230816
  2. APREPITANT ACCORD [Concomitant]
     Indication: Vomiting
     Dosage: TIME INTERVAL: TOTAL: 1 TABLET 125/80MG 1 HOUR BEFORE CISPLATIN
     Route: 048
     Dates: start: 20230816, end: 20230816
  3. APREPITANT ACCORD [Concomitant]
     Indication: Vomiting
     Dosage: TIME INTERVAL: TOTAL: 1 TABLET 125/80MG 1 HOUR BEFORE CISPLATIN
     Route: 048
     Dates: start: 20230816, end: 20230816
  4. MANNITOL [Concomitant]
     Active Substance: MANNITOL
     Indication: Product used for unknown indication
     Dosage: TIME INTERVAL: TOTAL: MANNITOLO FKI
     Route: 042
     Dates: start: 20230816, end: 20230816
  5. CISPLATIN [Concomitant]
     Active Substance: CISPLATIN
     Indication: Lung neoplasm malignant
     Dosage: TIME INTERVAL: TOTAL: CISPLATINO ACCORD HEALTHCARE ITALY
     Route: 042
     Dates: start: 20230816, end: 20230816
  6. DEXAMETHASONE [Concomitant]
     Active Substance: DEXAMETHASONE
     Indication: Product used for unknown indication
     Dosage: TIME INTERVAL: TOTAL
     Route: 042
     Dates: start: 20230816, end: 20230816

REACTIONS (2)
  - Paraesthesia [Recovered/Resolved]
  - Back pain [Recovered/Resolved]

NARRATIVE: CASE EVENT DATE: 20230816
